FAERS Safety Report 6448012-0 (Version None)
Quarter: 2009Q4

REPORT INFORMATION
  Report Type: 
  Country: None (occurrence: None)
  Receive Date: 20091120
  Receipt Date: 20091109
  Transmission Date: 20100525
  Serious: Yes (Congenital Anomaly)
  Sender: FDA-Public Use
  Company Number: US-ROCHE-667610

PATIENT

DRUGS (1)
  1. CELLCEPT [Suspect]
     Indication: DRUG USE FOR UNKNOWN INDICATION

REACTIONS (3)
  - ANOMALOUS PULMONARY VENOUS CONNECTION [None]
  - CONGENITAL ARTERIAL MALFORMATION [None]
  - DOUBLE OUTLET RIGHT VENTRICLE [None]
